FAERS Safety Report 10078986 (Version 1)
Quarter: 2014Q2

REPORT INFORMATION
  Report Type: Spontaneous
  Country: SE (occurrence: SE)
  Receive Date: 20140415
  Receipt Date: 20140415
  Transmission Date: 20141212
  Serious: Yes (Hospitalization, Other)
  Sender: FDA-Public Use
  Company Number: SE-PFIZER INC-2014099026

PATIENT
  Age: 23 Year
  Sex: Female

DRUGS (3)
  1. LYRICA [Suspect]
     Route: 048
  2. EFEXOR DEPOT [Suspect]
     Route: 048
  3. ADDERALL [Suspect]
     Route: 048

REACTIONS (3)
  - Dehydration [Unknown]
  - Vomiting [Unknown]
  - Hypertension [Unknown]
